FAERS Safety Report 13665967 (Version 2)
Quarter: 2017Q3

REPORT INFORMATION
  Report Type: Spontaneous
  Country: US (occurrence: US)
  Receive Date: 20170619
  Receipt Date: 20170830
  Transmission Date: 20171127
  Serious: Yes (Other)
  Sender: FDA-Public Use
  Company Number: US-BAYER-2017-117326

PATIENT
  Age: 49 Year
  Sex: Female
  Weight: 70.75 kg

DRUGS (11)
  1. VIVELLE-DOT [Concomitant]
     Active Substance: ESTRADIOL
  2. ALPRAZOLAM. [Concomitant]
     Active Substance: ALPRAZOLAM
  3. IBUPROFEN. [Concomitant]
     Active Substance: IBUPROFEN
  4. AZO-STANDARD [Concomitant]
     Active Substance: PHENAZOPYRIDINE HYDROCHLORIDE
  5. MIRENA [Suspect]
     Active Substance: LEVONORGESTREL
     Indication: MENORRHAGIA
  6. SYNTHROID [Concomitant]
     Active Substance: LEVOTHYROXINE SODIUM
  7. XANAX [Concomitant]
     Active Substance: ALPRAZOLAM
  8. PROMETRIUM [Concomitant]
     Active Substance: PROGESTERONE
  9. BUPROPION. [Concomitant]
     Active Substance: BUPROPION
  10. MIRENA [Suspect]
     Active Substance: LEVONORGESTREL
     Indication: CONTRACEPTION
     Dosage: 20 MCG/24HR, CONT
     Route: 015
     Dates: start: 20170602, end: 20170721
  11. MACROBID [Concomitant]
     Active Substance: NITROFURANTOIN\NITROFURANTOIN MONOHYDRATE

REACTIONS (4)
  - Abdominal pain lower [Recovered/Resolved]
  - Device dislocation [Recovered/Resolved]
  - Genital haemorrhage [Recovered/Resolved]
  - Device difficult to use [Recovered/Resolved]

NARRATIVE: CASE EVENT DATE: 20170616
